FAERS Safety Report 25157113 (Version 1)
Quarter: 2025Q2

REPORT INFORMATION
  Report Type: Spontaneous
  Country: FR (occurrence: FR)
  Receive Date: 20250403
  Receipt Date: 20250403
  Transmission Date: 20250717
  Serious: Yes (Other)
  Sender: ALEXION PHARMACEUTICALS
  Company Number: FR-ASTRAZENECA-202503GLO028480FR

PATIENT
  Age: 42 Year

DRUGS (8)
  1. QUETIAPINE FUMARATE [Suspect]
     Active Substance: QUETIAPINE FUMARATE
     Dosage: 700 MILLIGRAM, QD
     Route: 065
  2. QUETIAPINE FUMARATE [Suspect]
     Active Substance: QUETIAPINE FUMARATE
     Route: 065
  3. COCAINE [Suspect]
     Active Substance: COCAINE
     Route: 065
  4. VALIUM [Suspect]
     Active Substance: DIAZEPAM
     Dosage: 60 MILLIGRAM, QD, 60 MG PER EPISODE
     Route: 065
  5. ATARAX [Suspect]
     Active Substance: HYDROXYZINE HYDROCHLORIDE
     Indication: Mixed anxiety and depressive disorder
     Dosage: 25 MILLIGRAM, QD, 2 TABLETS
  6. ATARAX [Suspect]
     Active Substance: HYDROXYZINE HYDROCHLORIDE
     Route: 065
  7. LOXAPINE [Concomitant]
     Active Substance: LOXAPINE
     Dosage: 50 MILLIGRAM, QD
     Route: 065
  8. MELATONIN [Concomitant]
     Active Substance: MELATONIN
     Route: 065

REACTIONS (8)
  - Near death experience [Recovered/Resolved]
  - Poisoning [Recovered/Resolved]
  - Substance use disorder [Not Recovered/Not Resolved]
  - Overdose [Unknown]
  - Palpitations [Recovered/Resolved]
  - Mydriasis [Unknown]
  - Dysarthria [Unknown]
  - Tremor [Unknown]
